FAERS Safety Report 9459348 (Version 1)
Quarter: 2013Q3

REPORT INFORMATION
  Report Type: Spontaneous
  Country: CH (occurrence: CH)
  Receive Date: 20130815
  Receipt Date: 20130815
  Transmission Date: 20140515
  Serious: Yes (Other)
  Sender: FDA-Public Use
  Company Number: CH-009507513-1308CHE005357

PATIENT
  Sex: Male

DRUGS (1)
  1. PROPECIA [Suspect]
     Indication: ALOPECIA
     Dosage: UNK, QD
     Route: 048
     Dates: start: 1998

REACTIONS (2)
  - Pulmonary embolism [Recovered/Resolved]
  - Hepatic enzyme increased [Unknown]
